FAERS Safety Report 5526323-0 (Version None)
Quarter: 2007Q4

REPORT INFORMATION
  Report Type: 
  Country: None (occurrence: None)
  Receive Date: 20071127
  Receipt Date: 20071119
  Transmission Date: 20080405
  Serious: Yes (Hospitalization, Other)
  Sender: FDA-Public Use
  Company Number: FR-BRISTOL-MYERS SQUIBB COMPANY-13907407

PATIENT
  Sex: Male
  Weight: 23 kg

DRUGS (1)
  1. SPRYCEL [Suspect]
     Indication: ACUTE MYELOID LEUKAEMIA
     Route: 048

REACTIONS (2)
  - DERMATITIS BULLOUS [None]
  - TOXIC SKIN ERUPTION [None]
